FAERS Safety Report 18504377 (Version 3)
Quarter: 2020Q4

REPORT INFORMATION
  Report Type: Report from Study
  Country: US (occurrence: US)
  Receive Date: 20201113
  Receipt Date: 20201204
  Transmission Date: 20210114
  Serious: Yes (Life-Threatening, Hospitalization)
  Sender: FDA-Public Use
  Company Number: US-BAXTER-2020BAX023042

PATIENT
  Age: 14 Year
  Sex: Male
  Weight: 130.4 kg

DRUGS (24)
  1. DOXIL [Suspect]
     Active Substance: DOXORUBICIN HYDROCHLORIDE
     Indication: ACUTE LYMPHOCYTIC LEUKAEMIA
     Dosage: FIRST DOSE, DAYS 1, 8, 15
     Route: 042
     Dates: start: 20200914
  2. ASPARAGINASE [Suspect]
     Active Substance: ASPARAGINASE
     Dosage: LAST DOSE PRIOR TO SAES, RESPIRATORY DISTRESS (SECOND OCCURRENCE)
     Route: 042
     Dates: start: 20201120, end: 20201120
  3. METHOTREXATE. [Suspect]
     Active Substance: METHOTREXATE
     Dosage: LAST DOSE PRIOR TO SAES
     Route: 037
     Dates: start: 20201028, end: 20201028
  4. VINCRISTINE [Suspect]
     Active Substance: VINCRISTINE
     Dosage: LAST DOSE PRIOR TO SAES,RESPIRATORY DISTRESS (SECOND OCCURRENCE)
     Route: 042
     Dates: start: 20201118, end: 20201118
  5. THIOGUANINE [Suspect]
     Active Substance: THIOGUANINE
     Dosage: DAYS 29-42, DOSAGE FORM - TABLET
     Route: 048
     Dates: start: 20201101
  6. THIOGUANINE [Suspect]
     Active Substance: THIOGUANINE
     Dosage: LAST DOSE PRIOR TO SAE OF RESPIRATORY DISTRESS (BOTH OCCURRENCE), DOSAGE FORM - TABLET
     Route: 048
     Dates: start: 20201104, end: 20201104
  7. INCB018424 [Suspect]
     Active Substance: RUXOLITINIB
     Dosage: LAST DOSE PRIOR TO SAE OF RESPIRATORY DISTRESS (BOTH OCCURRENCE), DOSAGE FORM - TABLETS
     Route: 048
     Dates: start: 20201103, end: 20201103
  8. DEXAMETHASONE. [Suspect]
     Active Substance: DEXAMETHASONE
     Indication: ACUTE LYMPHOCYTIC LEUKAEMIA
     Dosage: FIRST DOSE, DAYS 1-7, 15-21, DOSAGE FORM - TABLETS
     Route: 048
     Dates: start: 20200914
  9. INCB018424 [Suspect]
     Active Substance: RUXOLITINIB
     Indication: ACUTE LYMPHOCYTIC LEUKAEMIA
     Dosage: FIRST DOSE, DAYS 1-14, 29-42, DOSAGE FORM - TABLETS, 1MONTH 8 DAYS
     Route: 048
     Dates: start: 20200914, end: 20201031
  10. ASPARAGINASE [Suspect]
     Active Substance: ASPARAGINASE
     Indication: ACUTE LYMPHOCYTIC LEUKAEMIA
     Dosage: FIRST DOSE, DAYS 3, 5, 7, 9, 11, 15, 43, 45
     Route: 042
     Dates: start: 20200916
  11. METHOTREXATE. [Suspect]
     Active Substance: METHOTREXATE
     Indication: ACUTE LYMPHOCYTIC LEUKAEMIA
     Dosage: FIRST DOSE, DAY 36
     Route: 037
     Dates: start: 20200914
  12. CYTARABINE. [Suspect]
     Active Substance: CYTARABINE
     Dosage: LAST DOSE PRIOR TO SAE OF PNEUMONIA,RESPIRATORY DISTRESS (SECOND OCCURRENCE)
     Route: 042
     Dates: start: 20201031, end: 20201031
  13. THIOGUANINE [Suspect]
     Active Substance: THIOGUANINE
     Dosage: LAST DOSE PRIOR TO SAE OF PNEUMONIA, DOSAGE FORM - TABLET
     Route: 048
     Dates: start: 20201031, end: 20201031
  14. CYCLOPHOSPHAMIDE FOR INJECTION, USP [Suspect]
     Active Substance: CYCLOPHOSPHAMIDE
     Indication: ACUTE LYMPHOCYTIC LEUKAEMIA
     Dosage: FIRST DOSE AND LAST DOSE PRIOR TO SAES, DAY 29
     Route: 042
     Dates: start: 20201021, end: 20201021
  15. INCB018424 [Suspect]
     Active Substance: RUXOLITINIB
     Dosage: DAYS 1-14, 29-42, DOSAGE FORM - TABLETS
     Route: 048
     Dates: start: 20201101
  16. DOXIL [Suspect]
     Active Substance: DOXORUBICIN HYDROCHLORIDE
     Dosage: LAST DOSE PRIOR TO SAES
     Route: 042
     Dates: start: 20200928, end: 20200928
  17. DEXAMETHASONE. [Suspect]
     Active Substance: DEXAMETHASONE
     Dosage: LAST DOSE PRIOR TO SAES, DOSAGE FORM - TABLETS
     Route: 048
     Dates: start: 20201004, end: 20201004
  18. VINCRISTINE [Suspect]
     Active Substance: VINCRISTINE
     Indication: ACUTE LYMPHOCYTIC LEUKAEMIA
     Dosage: FIRST DOSE, DAYS 1, 8, 15, 43
     Route: 042
     Dates: start: 20200914
  19. VINCRISTINE [Suspect]
     Active Substance: VINCRISTINE
     Dosage: LAST DOSE PRIOR TO SAES,PNEUMONIA AND RESPIRATORY DISTRESS (FIRST OCCURRENCE)
     Route: 042
     Dates: start: 20200928, end: 20200928
  20. CYTARABINE. [Suspect]
     Active Substance: CYTARABINE
     Dosage: LAST DOSE PRIOR TO SAE OF RESPIRATORY DISTRESS (FIRST OCCURRENCE)
     Route: 042
     Dates: start: 20201028, end: 20201028
  21. INCB018424 [Suspect]
     Active Substance: RUXOLITINIB
     Dosage: LAST DOSE PRIOR TO SAE OF PNEUMONIA, DOSAGE FORM - TABLETS
     Route: 048
     Dates: start: 20201031, end: 20201031
  22. ASPARAGINASE [Suspect]
     Active Substance: ASPARAGINASE
     Dosage: LAST DOSE PRIOR TO SAES PNEUMONIA AND RESPIRATORY DISTRESS (FIRST OCCURRENCE)
     Route: 042
     Dates: start: 20200928, end: 20200928
  23. CYTARABINE. [Suspect]
     Active Substance: CYTARABINE
     Indication: ACUTE LYMPHOCYTIC LEUKAEMIA
     Dosage: FIRST DOSE, DAYS 29-32, 36-39
     Route: 042
     Dates: start: 20201021
  24. THIOGUANINE [Suspect]
     Active Substance: THIOGUANINE
     Indication: ACUTE LYMPHOCYTIC LEUKAEMIA
     Dosage: FIRST DOSE, DAYS 29-42, DOSAGE FORM - TABLET
     Route: 048
     Dates: start: 20201021, end: 20201031

REACTIONS (3)
  - Pneumonia [Not Recovered/Not Resolved]
  - Respiratory distress [Not Recovered/Not Resolved]
  - Respiratory distress [Not Recovered/Not Resolved]

NARRATIVE: CASE EVENT DATE: 20201031
